FAERS Safety Report 9891359 (Version 1)
Quarter: 2014Q1

REPORT INFORMATION
  Report Type: Spontaneous
  Country: US (occurrence: US)
  Receive Date: 20140212
  Receipt Date: 20140212
  Transmission Date: 20141002
  Serious: No
  Sender: FDA-Public Use
  Company Number: US-PFIZER INC-2014035546

PATIENT
  Age: 42 Year
  Sex: Female
  Weight: 68.03 kg

DRUGS (3)
  1. ADVIL [Suspect]
     Indication: HEADACHE
     Dosage: UNK, AS NEEDED
     Dates: start: 201401, end: 2014
  2. ADVIL [Suspect]
     Indication: MIGRAINE
  3. LEVOTHYROXINE [Concomitant]
     Indication: THYROID DISORDER
     Dosage: 50 MCG DAILY

REACTIONS (1)
  - Nausea [Unknown]
